FAERS Safety Report 21415614 (Version 1)
Quarter: 2022Q4

REPORT INFORMATION
  Report Type: Spontaneous
  Country: US (occurrence: None)
  Receive Date: 20221006
  Receipt Date: 20221006
  Transmission Date: 20230113
  Serious: No
  Sender: FDA-Public Use
  Company Number: US-Hikma Pharmaceuticals USA Inc.-US-H14001-21-04339

PATIENT
  Sex: Female

DRUGS (1)
  1. PROMETHAZINE [Suspect]
     Active Substance: PROMETHAZINE HYDROCHLORIDE
     Indication: Nausea
     Route: 030

REACTIONS (4)
  - Erythema [Recovering/Resolving]
  - Swelling [Recovering/Resolving]
  - Pruritus [Recovering/Resolving]
  - Ulcer [Recovering/Resolving]
